FAERS Safety Report 11502133 (Version 3)
Quarter: 2016Q1

REPORT INFORMATION
  Report Type: Spontaneous
  Country: US (occurrence: US)
  Receive Date: 20150914
  Receipt Date: 20160303
  Transmission Date: 20160525
  Serious: Yes (Death)
  Sender: FDA-Public Use
  Company Number: US-BAXTER-2015BAX049651

PATIENT
  Sex: Female

DRUGS (1)
  1. 0.9% SODIUM CHLORIDE INJECTION [Suspect]
     Active Substance: SODIUM CHLORIDE
     Indication: HAEMODIALYSIS
     Route: 010

REACTIONS (5)
  - Constipation [Not Recovered/Not Resolved]
  - Cardiac infection [Fatal]
  - Multiple organ dysfunction syndrome [Fatal]
  - Pyrexia [Not Recovered/Not Resolved]
  - Cardiac failure [Fatal]
